FAERS Safety Report 10543199 (Version 2)
Quarter: 2014Q4

REPORT INFORMATION
  Report Type: Report from Study
  Country: JP (occurrence: JP)
  Receive Date: 20141027
  Receipt Date: 20141027
  Transmission Date: 20150529
  Serious: Yes (Hospitalization)
  Sender: FDA-Public Use
  Company Number: JP-BAYER-2014-136824

PATIENT
  Age: 64 Year
  Sex: Male
  Weight: 61 kg

DRUGS (5)
  1. ASPIRIN ^BAYER^ (JP ASPIRIN) [Concomitant]
  2. STIVARGA [Suspect]
     Active Substance: REGORAFENIB
     Indication: COLON CANCER
     Dosage: ONE CYCLE IS 160 MG/DAY ON FOR 3 WEEKS AND OFF FOR 1 WEEK
     Route: 048
     Dates: start: 20140618, end: 20140701
  3. NORVASC [Concomitant]
     Active Substance: AMLODIPINE BESYLATE
     Indication: COLON CANCER
     Dosage: DAILY DOSE 5 MG
     Route: 048
     Dates: start: 20140618, end: 20140701
  4. UNFRACTIONATED HEPARIN [Concomitant]
     Active Substance: HEPARIN SODIUM
  5. NORVASC [Concomitant]
     Active Substance: AMLODIPINE BESYLATE
     Indication: HYPERTENSION

REACTIONS (1)
  - Cerebral haemorrhage [Recovered/Resolved]

NARRATIVE: CASE EVENT DATE: 20140701
